FAERS Safety Report 6936624-7 (Version None)
Quarter: 2010Q3

REPORT INFORMATION
  Report Type: 
  Country: None (occurrence: None)
  Receive Date: 20100823
  Receipt Date: 20100813
  Transmission Date: 20110219
  Serious: Yes (Hospitalization)
  Sender: FDA-Public Use
  Company Number: BR-ROCHE-721110

PATIENT
  Sex: Female

DRUGS (2)
  1. AVASTIN [Suspect]
     Route: 031
     Dates: start: 20100120, end: 20100120
  2. AVASTIN [Suspect]
     Route: 031
     Dates: start: 20100724, end: 20100724

REACTIONS (2)
  - EYE HAEMORRHAGE [None]
  - RETINAL DETACHMENT [None]
